FAERS Safety Report 9312257 (Version 3)
Quarter: 2013Q3

REPORT INFORMATION
  Report Type: Spontaneous
  Country: DE (occurrence: DE)
  Receive Date: 20130528
  Receipt Date: 20130802
  Transmission Date: 20140515
  Serious: Yes (Hospitalization)
  Sender: FDA-Public Use
  Company Number: DE-BAYER-2013-037422

PATIENT
  Age: 67 Year
  Sex: Male
  Weight: 95 kg

DRUGS (2)
  1. ULTRAVIST [Suspect]
     Indication: SYNCOPE
     Dosage: 75 ML, UNK
     Dates: start: 20130305
  2. ULTRAVIST [Suspect]
     Indication: IMAGING PROCEDURE

REACTIONS (9)
  - Angioedema [None]
  - Dyspnoea [None]
  - Syncope [Recovered/Resolved]
  - Enuresis [Recovered/Resolved]
  - Circulatory collapse [None]
  - Renal failure acute [None]
  - Sinus tachycardia [None]
  - Hypertension [None]
  - Rash generalised [None]
